FAERS Safety Report 25228379 (Version 2)
Quarter: 2025Q3

REPORT INFORMATION
  Report Type: Spontaneous
  Country: JP (occurrence: JP)
  Receive Date: 20250423
  Receipt Date: 20250718
  Transmission Date: 20251021
  Serious: Yes (Other)
  Sender: AMGEN
  Company Number: JP-AMGEN-JPNSP2025077363

PATIENT

DRUGS (1)
  1. BLINCYTO [Suspect]
     Active Substance: BLINATUMOMAB
     Indication: Product used for unknown indication
     Route: 040

REACTIONS (3)
  - Cardiac failure [Unknown]
  - Dehydration [Unknown]
  - Gastrointestinal disorder [Unknown]
